FAERS Safety Report 19756259 (Version 6)
Quarter: 2022Q3

REPORT INFORMATION
  Report Type: Other
  Country: JP (occurrence: JP)
  Receive Date: 20210828
  Receipt Date: 20220913
  Transmission Date: 20221027
  Serious: Yes (Hospitalization, Other)
  Sender: FDA-Public Use
  Company Number: JP-CHUGAI-2021012484

PATIENT
  Age: 76 Year
  Sex: Male
  Weight: 70 kg

DRUGS (5)
  1. ATEZOLIZUMAB [Suspect]
     Active Substance: ATEZOLIZUMAB
     Indication: Small cell lung cancer extensive stage
     Dosage: 1200 MILLIGRAM, SINGLE
     Route: 041
     Dates: start: 20210407, end: 20210407
  2. CARBOPLATIN [Suspect]
     Active Substance: CARBOPLATIN
     Indication: Small cell lung cancer extensive stage
     Dosage: 400 MILLIGRAM
     Route: 041
     Dates: start: 20210407, end: 2021
  3. CARBOPLATIN [Suspect]
     Active Substance: CARBOPLATIN
     Dosage: 440 MILLIGRAM, ONCE/4WEEKS
     Route: 041
     Dates: start: 20210630, end: 20210728
  4. ETOPOSIDE [Suspect]
     Active Substance: ETOPOSIDE
     Indication: Small cell lung cancer extensive stage
     Dosage: 130 MILLIGRAM
     Route: 065
     Dates: start: 20210407, end: 20210730
  5. FILGRASTIM [Concomitant]
     Active Substance: FILGRASTIM

REACTIONS (4)
  - Interstitial lung disease [Recovered/Resolved]
  - White blood cell count decreased [Recovered/Resolved]
  - Neutrophil count decreased [Recovered/Resolved]
  - Platelet count decreased [Recovered/Resolved]

NARRATIVE: CASE EVENT DATE: 20210413
